FAERS Safety Report 13336428 (Version 1)
Quarter: 2017Q1

REPORT INFORMATION
  Report Type: Spontaneous
  Country: US (occurrence: US)
  Receive Date: 20170315
  Receipt Date: 20170315
  Transmission Date: 20170428
  Serious: Yes (Hospitalization, Other)
  Sender: FDA-Public Use
  Company Number: US-STRIDES ARCOLAB LIMITED-2017SP004376

PATIENT

DRUGS (2)
  1. DEXTROMETHORPHAN W/GUAIFENESIN [Concomitant]
     Active Substance: DEXTROMETHORPHAN HYDROBROMIDE\GUAIFENESIN
     Indication: COUGH
     Dosage: UNK, UNKNOWN
     Route: 065
  2. IBUPROFEN. [Suspect]
     Active Substance: IBUPROFEN
     Indication: COUGH
     Dosage: UNK, UNKNOWN
     Route: 065

REACTIONS (9)
  - Skin hyperpigmentation [Not Recovered/Not Resolved]
  - Erythema [Recovered/Resolved]
  - Blister [Recovered/Resolved]
  - Fixed drug eruption [None]
  - Rash generalised [Recovered/Resolved]
  - Penile ulceration [Recovered/Resolved]
  - Macule [Recovered/Resolved]
  - Lip erosion [Recovered/Resolved]
  - Off label use [Unknown]
